FAERS Safety Report 6049474-3 (Version None)
Quarter: 2009Q1

REPORT INFORMATION
  Report Type: 
  Country: None (occurrence: None)
  Receive Date: 20090121
  Receipt Date: 20090109
  Transmission Date: 20090719
  Serious: Yes (Life-Threatening, Hospitalization)
  Sender: FDA-Public Use
  Company Number: 107#03#2009-00085

PATIENT
  Age: 66 Year
  Sex: Male

DRUGS (9)
  1. DOXAZOSIN (TABLETS) (DOXAZOSIN) [Suspect]
     Indication: HYPERTENSION
     Dosage: 8 MG, REDUCED TO 2 MG SINCE 31-MAY-2008 ORAL
     Route: 048
  2. BISOPROLOL FUMARATE [Suspect]
     Indication: HYPERTENSION
     Dosage: 10 MG, REDUCED TO 2.5 MG TWICE DAILY SINCE 31-MAY-2008 ORAL
     Route: 048
  3. ISOSORBIDE DINITRATE [Suspect]
     Indication: CORONARY ARTERY DISEASE
     Dosage: 20 MG TWICE DAILY ORAL
     Route: 048
     Dates: end: 20080531
  4. ACETYLSALICYLIC ACID (TABLETS) (ACETYLSALICYLIC ACID) [Concomitant]
  5. HYDROCHLOROTHIAZIDE (TABLETS) (HYDROCHLOROTHIAZIDE) [Concomitant]
  6. METFORMIN HCL [Concomitant]
  7. MODIP ^ASTRA^ (TABLETS) (FELODIPINE) [Concomitant]
  8. RAMIPRIL [Concomitant]
  9. SIMVASTATIN [Concomitant]

REACTIONS (8)
  - ACTIVATED PARTIAL THROMBOPLASTIN TIME SHORTENED [None]
  - ALANINE AMINOTRANSFERASE INCREASED [None]
  - ASPARTATE AMINOTRANSFERASE INCREASED [None]
  - BLOOD CREATININE INCREASED [None]
  - BLOOD UREA INCREASED [None]
  - DEHYDRATION [None]
  - HYPOTENSION [None]
  - SYNCOPE [None]
